FAERS Safety Report 20725728 (Version 1)
Quarter: 2022Q2

REPORT INFORMATION
  Report Type: Spontaneous
  Country: US (occurrence: None)
  Receive Date: 20220419
  Receipt Date: 20220419
  Transmission Date: 20220721
  Serious: No
  Sender: FDA-Public Use
  Company Number: None

PATIENT
  Age: 79 Year
  Sex: Female
  Weight: 71.1 kg

DRUGS (7)
  1. ACETAMINOPHEN\HYDROCODONE [Suspect]
     Active Substance: ACETAMINOPHEN\HYDROCODONE
     Indication: Pain
     Dosage: OTHER QUANTITY : 1 TABLET(S);?FREQUENCY : 4 TIMES A DAY;?
     Route: 048
  2. LOSARTAN [Concomitant]
     Active Substance: LOSARTAN
  3. PREDNISONE [Concomitant]
     Active Substance: PREDNISONE
  4. Asaprene [Concomitant]
  5. BONE UP [Concomitant]
  6. collagine [Concomitant]
  7. ZINC [Concomitant]
     Active Substance: ZINC

REACTIONS (6)
  - Headache [None]
  - Loss of personal independence in daily activities [None]
  - Feeling abnormal [None]
  - Somnolence [None]
  - Feeling abnormal [None]
  - Confusional state [None]

NARRATIVE: CASE EVENT DATE: 20220414
